FAERS Safety Report 17065665 (Version 1)
Quarter: 2019Q4

REPORT INFORMATION
  Report Type: Spontaneous
  Country: IT (occurrence: IT)
  Receive Date: 20191122
  Receipt Date: 20191122
  Transmission Date: 20200122
  Serious: Yes (Other)
  Sender: FDA-Public Use
  Company Number: IT-MYLANLABS-2019M1102081

PATIENT
  Age: 67 Year
  Sex: Female

DRUGS (4)
  1. KETOROLAC [Suspect]
     Active Substance: KETOROLAC TROMETHAMINE
     Dosage: 30 MILLIGRAM, QD
     Route: 030
     Dates: start: 20190415, end: 20190506
  2. DICLOFENAC [Suspect]
     Active Substance: DICLOFENAC
     Indication: BACK PAIN
     Dosage: 75 MILLIGRAM, QD
     Route: 030
     Dates: start: 20190415, end: 20190506
  3. DICLOFENAC [Suspect]
     Active Substance: DICLOFENAC
     Dosage: 150 MILLIGRAM, QD
     Route: 030
     Dates: start: 20190415, end: 20190506
  4. KETOROLAC [Suspect]
     Active Substance: KETOROLAC TROMETHAMINE
     Indication: BACK PAIN
     Dosage: 160 MILLIGRAM, QD
     Route: 030
     Dates: start: 20190415, end: 20190506

REACTIONS (4)
  - Drug abuse [Unknown]
  - Diarrhoea [Recovering/Resolving]
  - Intentional product misuse [Recovering/Resolving]
  - Vomiting [Recovering/Resolving]

NARRATIVE: CASE EVENT DATE: 20190506
